FAERS Safety Report 7494574-4 (Version None)
Quarter: 2011Q2

REPORT INFORMATION
  Report Type: 
  Country: None (occurrence: None)
  Receive Date: 20110520
  Receipt Date: 20110517
  Transmission Date: 20111010
  Serious: Yes (Death)
  Sender: FDA-Public Use
  Company Number: PHHY2011FR41872

PATIENT

DRUGS (2)
  1. INFLIXIMAB [Suspect]
  2. CYCLOSPORINE [Suspect]
     Indication: COLITIS
     Dosage: UNK

REACTIONS (2)
  - PULMONARY EMBOLISM [None]
  - TREATMENT FAILURE [None]
